FAERS Safety Report 22654193 (Version 1)
Quarter: 2023Q2

REPORT INFORMATION
  Report Type: Spontaneous
  Country: IT (occurrence: IT)
  Receive Date: 20230629
  Receipt Date: 20230629
  Transmission Date: 20230722
  Serious: Yes (Other)
  Sender: FDA-Public Use
  Company Number: None

PATIENT
  Age: 83 Year
  Sex: Male

DRUGS (1)
  1. METFORMIN\SITAGLIPTIN [Suspect]
     Active Substance: METFORMIN\SITAGLIPTIN
     Indication: Diabetes mellitus
     Dosage: 50 MILLIGRAM
     Route: 048

REACTIONS (2)
  - Dermatitis bullous [Recovering/Resolving]
  - Pemphigoid [Recovering/Resolving]

NARRATIVE: CASE EVENT DATE: 20220910
